FAERS Safety Report 9603443 (Version 1)
Quarter: 2013Q4

REPORT INFORMATION
  Report Type: Spontaneous
  Country: JP (occurrence: JP)
  Receive Date: 20131007
  Receipt Date: 20131007
  Transmission Date: 20140711
  Serious: Yes (Other)
  Sender: FDA-Public Use
  Company Number: JP-B.I. PHARMACEUTICALS,INC./RIDGEFIELD-2013-BI-30986GD

PATIENT
  Age: 69 Year
  Sex: Female

DRUGS (5)
  1. PRAMIPEXOLE [Suspect]
     Indication: PARKINSON^S DISEASE
  2. CARBIDOPA/LEVODOPA [Suspect]
     Indication: PARKINSON^S DISEASE
     Dosage: STRENGTH: CARBIDOPA/LEVODOPA 10/100
  3. ENTACAPONE [Suspect]
     Indication: PARKINSON^S DISEASE
  4. QUETIAPINE [Suspect]
     Indication: PARKINSON^S DISEASE
  5. AMANTADINE [Concomitant]
     Indication: PARKINSON^S DISEASE
     Dosage: 150 MG

REACTIONS (3)
  - Drug withdrawal syndrome [Unknown]
  - Depression [Unknown]
  - Delusion [Unknown]
